FAERS Safety Report 20110605 (Version 1)
Quarter: 2021Q4

REPORT INFORMATION
  Report Type: Report from Study
  Country: FR (occurrence: FR)
  Receive Date: 20211124
  Receipt Date: 20211124
  Transmission Date: 20220303
  Serious: Yes (Life-Threatening)
  Sender: FDA-Public Use
  Company Number: FR-SERVIER-S21010068

PATIENT

DRUGS (12)
  1. PEGASPARGASE [Suspect]
     Active Substance: PEGASPARGASE
     Indication: Acute lymphocytic leukaemia
     Dosage: 3750 IU, D12
     Route: 042
     Dates: start: 20210629
  2. TN UNSPECIFIED [Concomitant]
     Indication: Acute lymphocytic leukaemia
     Dosage: 110 MG, D1 TO D21
     Route: 048
     Dates: start: 20210618
  3. TN UNSPECIFIED [Concomitant]
     Indication: Acute lymphocytic leukaemia
     Dosage: 15 MG, D1, D13
     Route: 037
     Dates: start: 20210618
  4. TN UNSPECIFIED [Concomitant]
     Indication: Acute lymphocytic leukaemia
     Dosage: 30 MG, D13
     Route: 037
     Dates: start: 20210630
  5. TN UNSPECIFIED [Concomitant]
     Indication: Acute lymphocytic leukaemia
     Dosage: 15 MG, D13
     Route: 037
     Dates: start: 20210630
  6. TN UNSPECIFIED [Concomitant]
     Indication: Acute lymphocytic leukaemia
     Dosage: 2 MG, D8, D15
     Route: 042
     Dates: start: 20210625
  7. TN UNSPECIFIED [Concomitant]
     Indication: Acute lymphocytic leukaemia
     Dosage: 70 MG, D8, D15
     Route: 042
     Dates: start: 20210625
  8. TN UNSPECIFIED [Concomitant]
     Indication: Acute lymphocytic leukaemia
     Dosage: 1800 MG, D9
     Route: 042
     Dates: start: 20210626
  9. TN UNSPECIFIED [Concomitant]
     Indication: Antifungal prophylaxis
     Dosage: 800 MG
     Route: 048
     Dates: start: 20210625
  10. TN UNSPECIFIED [Concomitant]
     Indication: Prophylaxis of nausea and vomiting
     Dosage: 16 MG
     Route: 048
     Dates: start: 20210626
  11. TN UNSPECIFIED [Concomitant]
     Indication: Back pain
     Dosage: 2250 MG
     Route: 042
     Dates: start: 20210628
  12. TN UNSPECIFIED [Concomitant]
     Indication: Abdominal pain

REACTIONS (2)
  - Escherichia infection [Recovered/Resolved with Sequelae]
  - Septic shock [Recovered/Resolved with Sequelae]

NARRATIVE: CASE EVENT DATE: 20210708
